FAERS Safety Report 7604059-X (Version None)
Quarter: 2011Q3

REPORT INFORMATION
  Report Type: 
  Country: None (occurrence: None)
  Receive Date: 20110711
  Receipt Date: 20110711
  Transmission Date: 20111222
  Serious: Yes (Hospitalization)
  Sender: FDA-Public Use
  Company Number: None

PATIENT
  Sex: Female

DRUGS (1)
  1. PRADAXA [Suspect]
     Indication: THROMBOSIS
     Dosage: 150MG BID PO
     Route: 048
     Dates: start: 20110110, end: 20110209

REACTIONS (5)
  - SEPSIS [None]
  - TREATMENT FAILURE [None]
  - RESPIRATORY FAILURE [None]
  - GANGRENE [None]
  - VASCULAR GRAFT OCCLUSION [None]
